FAERS Safety Report 7377548-3 (Version None)
Quarter: 2011Q1

REPORT INFORMATION
  Report Type: 
  Country: None (occurrence: None)
  Receive Date: 20110328
  Receipt Date: 20110318
  Transmission Date: 20110831
  Serious: Yes (Life-Threatening, Hospitalization)
  Sender: FDA-Public Use
  Company Number: JP-CELGENEUS-087-21880-11021715

PATIENT
  Sex: Male

DRUGS (15)
  1. REVLIMID [Suspect]
     Indication: MULTIPLE MYELOMA
     Dosage: 10 MILLIGRAM
     Route: 048
     Dates: start: 20101208, end: 20101221
  2. BAKTAR [Concomitant]
     Indication: PROPHYLAXIS
     Dosage: 2 TABLET
     Route: 065
  3. PARIET [Concomitant]
     Indication: PROPHYLAXIS
     Dosage: 10 MILLIGRAM
     Route: 065
  4. BIOFERMIN [Concomitant]
     Indication: PROPHYLAXIS
     Dosage: 3 TABLET
     Route: 065
  5. ZYVOX [Concomitant]
     Route: 065
     Dates: end: 20101223
  6. DEXAMETHASONE [Concomitant]
     Indication: REFRACTORY CANCER
  7. DIFLUCAN [Concomitant]
     Indication: PROPHYLAXIS
     Dosage: 100 MILLIGRAM
     Route: 065
  8. REVLIMID [Suspect]
     Indication: REFRACTORY CANCER
  9. DEXAMETHASONE [Concomitant]
     Indication: MULTIPLE MYELOMA
     Dosage: 33 MILLIGRAM
     Route: 041
     Dates: start: 20101208, end: 20101215
  10. ALOSITOL [Concomitant]
     Dosage: 200 MILLIGRAM
     Route: 065
  11. ASPIRIN [Concomitant]
     Indication: PROPHYLAXIS
     Dosage: 100 MILLIGRAM
     Route: 065
     Dates: start: 20101208
  12. METHYLCOBAL [Concomitant]
     Dosage: 1500 PICOGRAM
     Route: 065
  13. ALLEGRA [Concomitant]
     Dosage: 120 MILLIGRAM
     Route: 065
  14. PREDONINE [Concomitant]
     Dosage: 5 MILLIGRAM
     Route: 065
  15. GRAN [Concomitant]
     Route: 065
     Dates: end: 20101223

REACTIONS (4)
  - PLATELET COUNT DECREASED [None]
  - SEPSIS [None]
  - JAUNDICE [None]
  - NEUTROPHIL COUNT DECREASED [None]
